FAERS Safety Report 5293021-0 (Version None)
Quarter: 2007Q2

REPORT INFORMATION
  Report Type: 
  Country: None (occurrence: None)
  Receive Date: 20070404
  Receipt Date: 20070323
  Transmission Date: 20071010
  Serious: Yes (Hospitalization)
  Sender: FDA-Public Use
  Company Number: DISUS-07-0273

PATIENT
  Age: 52 Year
  Sex: Female

DRUGS (2)
  1. DIPRIVAN [Suspect]
     Indication: ANAESTHESIA
  2. COPAXONE [Suspect]
     Indication: MULTIPLE SCLEROSIS
     Dosage: 20 MG (1 IN 1 D), SUBCUTANEOUS
     Route: 058
     Dates: start: 20000312

REACTIONS (5)
  - ANAESTHETIC COMPLICATION PULMONARY [None]
  - ANAPHYLACTIC REACTION [None]
  - CYANOSIS [None]
  - PNEUMONIA ASPIRATION [None]
  - THROAT TIGHTNESS [None]
